FAERS Safety Report 12281209 (Version 2)
Quarter: 2016Q2

REPORT INFORMATION
  Report Type: Spontaneous
  Country: US (occurrence: US)
  Receive Date: 20160419
  Receipt Date: 20160426
  Transmission Date: 20160815
  Serious: Yes (Other)
  Sender: FDA-Public Use
  Company Number: US-MDT-ADR-2016-00701

PATIENT
  Age: 19 Year
  Sex: Male

DRUGS (1)
  1. GABLOFEN [Suspect]
     Active Substance: BACLOFEN
     Dosage: 829.1 MCG/DAY
     Route: 037
     Dates: start: 20160114, end: 20160413

REACTIONS (1)
  - No adverse event [None]
